FAERS Safety Report 13074044 (Version 1)
Quarter: 2016Q4

REPORT INFORMATION
  Report Type: Spontaneous
  Country: CA (occurrence: CA)
  Receive Date: 20161229
  Receipt Date: 20161229
  Transmission Date: 20170207
  Serious: Yes (Other)
  Sender: FDA-Public Use
  Company Number: CA-AMGEN-CANSP2016181682

PATIENT
  Sex: Female
  Weight: 92 kg

DRUGS (5)
  1. M-ESLON [Concomitant]
     Active Substance: MORPHINE SULFATE
     Dosage: 10 MG, AS NECESSARY (ABOUT 3 TIMES PER WEEK)
     Route: 048
  2. FOLIC ACID. [Concomitant]
     Active Substance: FOLIC ACID
     Dosage: UNK
  3. INFLECTRA [Concomitant]
     Active Substance: INFLIXIMAB-DYYB
     Indication: PSORIATIC ARTHROPATHY
     Dosage: 3.2 MG/KG UNK, UNK
  4. ENBREL [Suspect]
     Active Substance: ETANERCEPT
     Indication: PSORIATIC ARTHROPATHY
     Dosage: 50 MG, QWK
     Route: 065
     Dates: start: 201409, end: 201509
  5. METHOTREXATE. [Concomitant]
     Active Substance: METHOTREXATE
     Dosage: 15 MG, QWK
     Route: 058

REACTIONS (8)
  - Tendonitis [Unknown]
  - Hip surgery [Unknown]
  - Musculoskeletal stiffness [Unknown]
  - Drug effect decreased [Unknown]
  - C-reactive protein abnormal [Unknown]
  - Inflammation [Unknown]
  - Dactylitis [Recovered/Resolved]
  - Spinal disorder [Unknown]
